FAERS Safety Report 15773587 (Version 1)
Quarter: 2018Q4

REPORT INFORMATION
  Report Type: Report from Study
  Country: None (occurrence: US)
  Receive Date: 20181228
  Receipt Date: 20181228
  Transmission Date: 20190205
  Serious: Yes (Other)
  Sender: FDA-Public Use
  Company Number: US-ABBVIE-18S-163-2603031-00

PATIENT
  Age: 72 Year
  Sex: Male

DRUGS (1)
  1. CREON [Suspect]
     Active Substance: PANCRELIPASE AMYLASE\PANCRELIPASE LIPASE\PANCRELIPASE PROTEASE
     Indication: PRODUCT USED FOR UNKNOWN INDICATION
     Route: 048

REACTIONS (15)
  - Chronic obstructive pulmonary disease [Unknown]
  - Bladder cancer recurrent [Unknown]
  - Pancreatic failure [Unknown]
  - Diarrhoea [Unknown]
  - Diabetes mellitus [Unknown]
  - Hypertension [Unknown]
  - Sleep apnoea syndrome [Unknown]
  - Diabetic neuropathy [Unknown]
  - Abdominal pain [Unknown]
  - Coronary artery disease [Unknown]
  - Cardiac failure congestive [Unknown]
  - Gastrooesophageal reflux disease [Unknown]
  - Cerebrovascular accident [Unknown]
  - Benign prostatic hyperplasia [Unknown]
  - Heart rate irregular [Unknown]

NARRATIVE: CASE EVENT DATE: 2018
